FAERS Safety Report 20111338 (Version 2)
Quarter: 2022Q2

REPORT INFORMATION
  Report Type: Spontaneous
  Country: US (occurrence: US)
  Receive Date: 20211125
  Receipt Date: 20220624
  Transmission Date: 20220721
  Serious: Yes (Other)
  Sender: FDA-Public Use
  Company Number: US-SA-SAC20211123000660

PATIENT
  Age: 54 Year
  Sex: Female

DRUGS (2)
  1. ZANTAC [Suspect]
     Active Substance: RANITIDINE HYDROCHLORIDE
     Indication: Gastrooesophageal reflux disease
     Dosage: 150 MG (FREQUENCY: OCASSIONAL)
     Route: 065
     Dates: start: 200001
  2. ZANTAC [Suspect]
     Active Substance: RANITIDINE HYDROCHLORIDE
     Dosage: 150 MG (FREQUENCY: OCASSIONAL)
     Route: 065
     Dates: start: 200901, end: 201912

REACTIONS (1)
  - Breast cancer stage IV [Unknown]

NARRATIVE: CASE EVENT DATE: 20191219
